FAERS Safety Report 4338882-4 (Version None)
Quarter: 2004Q2

REPORT INFORMATION
  Report Type: 
  Country: None (occurrence: None)
  Receive Date: 20040409
  Receipt Date: 20040331
  Transmission Date: 20050107
  Serious: Yes (Other)
  Sender: FDA-Public Use
  Company Number: 138546USA

PATIENT
  Sex: Male

DRUGS (2)
  1. PURINETHOL [Suspect]
     Indication: CROHN'S DISEASE
     Dosage: 100 MILLIGRAM QD ORAL
     Route: 048
  2. REMICADE [Concomitant]

REACTIONS (1)
  - LYMPHOMA [None]
